FAERS Safety Report 8898486 (Version 1)
Quarter: 2012Q4

REPORT INFORMATION
  Report Type: 
  Country: US (occurrence: US)
  Receive Date: 20121109
  Receipt Date: 20121109
  Transmission Date: 20130627
  Serious: No
  Sender: FDA-Public Use
  Company Number: US-009507513-1211USA003435

PATIENT
  Age: 22 Year
  Sex: Female
  Weight: 71.2 kg

DRUGS (1)
  1. IMPLANON [Suspect]
     Indication: CONTRACEPTION
     Dosage: 3 year implant
     Route: 059
     Dates: start: 20121001

REACTIONS (2)
  - Complication of device insertion [Unknown]
  - No adverse event [Unknown]
